FAERS Safety Report 7828887-0 (Version None)
Quarter: 2011Q4

REPORT INFORMATION
  Report Type: 
  Country: None (occurrence: None)
  Receive Date: 20111020
  Receipt Date: 20111007
  Transmission Date: 20120403
  Serious: Yes (Other)
  Sender: FDA-Public Use
  Company Number: US-BAYER-2011-020027

PATIENT
  Sex: Female

DRUGS (1)
  1. YASMIN [Suspect]
     Indication: PRODUCT USED FOR UNKNOWN INDICATION
     Dosage: UNK
     Route: 048
     Dates: start: 20000101, end: 20080101

REACTIONS (5)
  - DEEP VEIN THROMBOSIS [None]
  - GALLBLADDER NON-FUNCTIONING [None]
  - PAIN [None]
  - PREGNANCY [None]
  - INJURY [None]
